FAERS Safety Report 8869653 (Version 1)
Quarter: 2012Q4

REPORT INFORMATION
  Report Type: 
  Country: BR (occurrence: BR)
  Receive Date: 20121028
  Receipt Date: 20121028
  Transmission Date: 20130627
  Serious: Yes (Other)
  Sender: FDA-Public Use
  Company Number: BR-JNJFOC-20121010563

PATIENT
  Sex: Female
  Weight: 77.3 kg

DRUGS (6)
  1. REMICADE [Suspect]
     Indication: ANKYLOSING SPONDYLITIS
     Route: 042
     Dates: start: 20120206, end: 20120312
  2. FOLIC ACID [Concomitant]
     Route: 048
  3. METHOTREXATE [Concomitant]
     Route: 048
  4. OMEPRAZOLE [Concomitant]
     Route: 048
  5. SIMVASTATIN [Concomitant]
     Route: 048
  6. SULFASALAZINE [Concomitant]
     Route: 048

REACTIONS (5)
  - Blood pressure increased [Recovered/Resolved]
  - Tremor [Recovered/Resolved]
  - Akathisia [Recovered/Resolved]
  - Chills [Recovered/Resolved]
  - Infusion related reaction [Recovered/Resolved]
